FAERS Safety Report 8575290-4 (Version None)
Quarter: 2012Q3

REPORT INFORMATION
  Report Type: 
  Country: None (occurrence: None)
  Receive Date: 20120807
  Receipt Date: 20120709
  Transmission Date: 20120928
  Serious: No
  Sender: FDA-Public Use
  Company Number: US-JNJFOC-20120705804

PATIENT
  Age: 29 Year
  Sex: Male
  Weight: 71.22 kg

DRUGS (1)
  1. INVEGA [Suspect]
     Indication: PRODUCT USED FOR UNKNOWN INDICATION
     Route: 048

REACTIONS (7)
  - DYSGEUSIA [None]
  - INCREASED APPETITE [None]
  - PRODUCT QUALITY ISSUE [None]
  - FLUSHING [None]
  - DRY EYE [None]
  - VISION BLURRED [None]
  - WEIGHT INCREASED [None]
